FAERS Safety Report 12767301 (Version 1)
Quarter: 2016Q3

REPORT INFORMATION
  Report Type: Spontaneous
  Country: US (occurrence: US)
  Receive Date: 20160915
  Receipt Date: 20160915
  Transmission Date: 20161109
  Serious: No
  Sender: FDA-Public Use
  Company Number: None

PATIENT
  Age: 33 Year
  Sex: Female

DRUGS (1)
  1. LUPRON DEPOT [Suspect]
     Active Substance: LEUPROLIDE ACETATE
     Indication: ABDOMINAL PAIN LOWER
     Route: 030
     Dates: start: 20160513

REACTIONS (3)
  - Muscle spasms [None]
  - Dizziness [None]
  - Headache [None]
